FAERS Safety Report 16590345 (Version 3)
Quarter: 2020Q2

REPORT INFORMATION
  Report Type: Spontaneous
  Country: US (occurrence: US)
  Receive Date: 20190718
  Receipt Date: 20200526
  Transmission Date: 20200713
  Serious: Yes (Other)
  Sender: FDA-Public Use
  Company Number: US-UCBSA-2019026738

PATIENT
  Age: 56 Year
  Sex: Female

DRUGS (3)
  1. HUMIRA [Suspect]
     Active Substance: ADALIMUMAB
     Indication: PSORIASIS
     Dosage: 40 MILLIGRAM, EV 2 WEEKS(QOW)
     Route: 058
  2. CIMZIA [Suspect]
     Active Substance: CERTOLIZUMAB PEGOL
     Indication: PSORIASIS
     Dosage: 400 MILLIGRAM, EV 2 WEEKS(QOW)
     Dates: start: 201905, end: 20190607
  3. CIMZIA [Suspect]
     Active Substance: CERTOLIZUMAB PEGOL
     Indication: PSORIATIC ARTHROPATHY

REACTIONS (6)
  - Rash [Not Recovered/Not Resolved]
  - Oral mucosal eruption [Unknown]
  - Hypersensitivity [Not Recovered/Not Resolved]
  - Urinary tract infection [Not Recovered/Not Resolved]
  - Eye swelling [Not Recovered/Not Resolved]
  - Blood pressure abnormal [Not Recovered/Not Resolved]

NARRATIVE: CASE EVENT DATE: 20190607
